FAERS Safety Report 9232815 (Version 3)
Quarter: 2013Q2

REPORT INFORMATION
  Report Type: Spontaneous
  Country: IE (occurrence: IE)
  Receive Date: 20130416
  Receipt Date: 20130627
  Transmission Date: 20140414
  Serious: Yes (Other)
  Sender: FDA-Public Use
  Company Number: IE-JNJFOC-20130406852

PATIENT
  Age: 59 Year
  Sex: Female

DRUGS (5)
  1. STELARA [Suspect]
     Indication: PSORIASIS
     Route: 058
     Dates: start: 20120327
  2. STELARA [Suspect]
     Indication: PSORIASIS
     Route: 058
     Dates: start: 20130419
  3. COZAAR [Concomitant]
     Dosage: 100/25
     Route: 065
     Dates: start: 2008
  4. CRESTOR [Concomitant]
     Route: 048
  5. ZIRTEK [Concomitant]
     Route: 048
     Dates: start: 2010

REACTIONS (1)
  - Lower respiratory tract infection [Recovered/Resolved]
